FAERS Safety Report 8329549-6 (Version None)
Quarter: 2012Q2

REPORT INFORMATION
  Report Type: 
  Country: None (occurrence: None)
  Receive Date: 20120502
  Receipt Date: 20120427
  Transmission Date: 20120825
  Serious: No
  Sender: FDA-Public Use
  Company Number: US-PFIZER INC-2012105278

PATIENT
  Sex: Female
  Weight: 62.132 kg

DRUGS (2)
  1. ZEGERID [Concomitant]
     Indication: GASTROOESOPHAGEAL REFLUX DISEASE
     Dosage: 20/1100 MG, UNK
  2. LYRICA [Suspect]
     Indication: INTERVERTEBRAL DISC PROTRUSION
     Dosage: 50 MG, DAILY
     Dates: start: 20120401, end: 20120426

REACTIONS (1)
  - PRURITUS GENERALISED [None]
